FAERS Safety Report 7672429-X (Version None)
Quarter: 2011Q3

REPORT INFORMATION
  Report Type: 
  Country: None (occurrence: None)
  Receive Date: 20110809
  Receipt Date: 20110729
  Transmission Date: 20111222
  Serious: Yes (Other)
  Sender: FDA-Public Use
  Company Number: US-MERCK-1107USA00459

PATIENT
  Age: 57 Year
  Sex: Male

DRUGS (6)
  1. BYSTOLIC [Concomitant]
     Route: 065
  2. MAXALT [Suspect]
     Indication: MIGRAINE
     Route: 048
  3. MICARDIS [Concomitant]
     Route: 065
  4. SYNTHROID [Concomitant]
     Route: 065
  5. PREVACID [Concomitant]
     Route: 065
  6. CRESTOR [Concomitant]
     Route: 065

REACTIONS (2)
  - CARDIAC DISORDER [None]
  - MIGRAINE [None]
